FAERS Safety Report 6816791-6 (Version None)
Quarter: 2010Q3

REPORT INFORMATION
  Report Type: 
  Country: None (occurrence: None)
  Receive Date: 20100706
  Receipt Date: 20100624
  Transmission Date: 20110219
  Serious: Yes (Hospitalization)
  Sender: FDA-Public Use
  Company Number: SE-ASTRAZENECA-2010SE29664

PATIENT
  Age: 86 Year
  Sex: Male

DRUGS (12)
  1. ATACAND [Suspect]
     Indication: CARDIAC FAILURE
     Route: 048
     Dates: end: 20100507
  2. SPIRONOLAKTON [Suspect]
     Route: 048
     Dates: end: 20100507
  3. SYMBICORT FORTE [Concomitant]
     Dosage: 320 MCG/9 MIKR
     Route: 055
  4. SPIRIVA [Concomitant]
     Route: 055
  5. BISOPROLOL [Concomitant]
  6. IMPUGAN [Concomitant]
     Route: 048
  7. CORDARONE [Concomitant]
     Route: 048
  8. TROMBYL [Concomitant]
     Route: 048
  9. IMOVANE [Concomitant]
     Route: 048
  10. ALLOPURINOL [Concomitant]
  11. ACETYLCYSTEINE [Concomitant]
  12. CANODERM [Concomitant]
     Route: 065

REACTIONS (2)
  - BLOOD CREATININE INCREASED [None]
  - HYPOTENSION [None]
